FAERS Safety Report 17104373 (Version 1)
Quarter: 2019Q4

REPORT INFORMATION
  Report Type: Spontaneous
  Country: US (occurrence: US)
  Receive Date: 20191107
  Receipt Date: 20191107
  Transmission Date: 20200122
  Serious: Yes (Hospitalization)
  Sender: FDA-Public Use
  Company Number: None

PATIENT
  Age: 47 Year
  Sex: Female

DRUGS (1)
  1. DOXYCYCLINE HYCLATE 100MG [Suspect]
     Active Substance: DOXYCYCLINE HYCLATE
     Indication: EYELID DISORDER
     Route: 048
     Dates: start: 20190703

REACTIONS (4)
  - Arthralgia [None]
  - Inflammation [None]
  - Tendonitis [None]
  - Tendon disorder [None]

NARRATIVE: CASE EVENT DATE: 20190703
